FAERS Safety Report 17364694 (Version 1)
Quarter: 2020Q1

REPORT INFORMATION
  Report Type: Spontaneous
  Country: US (occurrence: US)
  Receive Date: 20200204
  Receipt Date: 20200204
  Transmission Date: 20200409
  Serious: Yes (Death, Hospitalization)
  Sender: FDA-Public Use
  Company Number: US-ALVOGEN-2020-ALVOGEN-102617

PATIENT
  Age: 54 Year
  Sex: Male

DRUGS (7)
  1. RISPERIDONE. [Suspect]
     Active Substance: RISPERIDONE
     Indication: SUICIDE ATTEMPT
     Route: 048
  2. ZOLPIDEM [Suspect]
     Active Substance: ZOLPIDEM TARTRATE
     Indication: SUICIDE ATTEMPT
     Route: 048
  3. LISINOPRIL. [Suspect]
     Active Substance: LISINOPRIL
     Indication: SUICIDE ATTEMPT
     Route: 048
  4. HYDROXYZINE [Suspect]
     Active Substance: HYDROXYZINE HYDROCHLORIDE
     Indication: SUICIDE ATTEMPT
     Route: 048
  5. SIMVASTATIN. [Suspect]
     Active Substance: SIMVASTATIN
     Indication: SUICIDE ATTEMPT
     Route: 048
  6. DEXLANSOPRAZOLE [Suspect]
     Active Substance: DEXLANSOPRAZOLE
     Indication: SUICIDE ATTEMPT
     Route: 048
  7. NIFEDIPINE. [Suspect]
     Active Substance: NIFEDIPINE
     Indication: SUICIDE ATTEMPT
     Dosage: EXTENDED RELEASE
     Route: 048

REACTIONS (1)
  - Completed suicide [Fatal]
